FAERS Safety Report 17238193 (Version 2)
Quarter: 2020Q1

REPORT INFORMATION
  Report Type: Report from Study
  Country: JP (occurrence: JP)
  Receive Date: 20200106
  Receipt Date: 20200122
  Transmission Date: 20200409
  Serious: Yes (Hospitalization, Other)
  Sender: FDA-Public Use
  Company Number: JP-SEATTLE GENETICS-2019SGN05069

PATIENT
  Age: 17 Year
  Sex: Male
  Weight: 65.2 kg

DRUGS (12)
  1. BRENTUXIMAB VEDOTIN [Suspect]
     Active Substance: BRENTUXIMAB VEDOTIN
     Dosage: 48 MILLIGRAM/SQ. METER, Q2WEEKS
     Route: 042
     Dates: start: 20191213, end: 20191227
  2. DOXORUBICIN [Suspect]
     Active Substance: DOXORUBICIN
     Dosage: 25 MILLIGRAM/SQ. METER, Q2WEEKS
     Route: 042
     Dates: start: 20191213, end: 20191227
  3. DOXORUBICIN [Suspect]
     Active Substance: DOXORUBICIN
     Indication: HODGKIN^S DISEASE
     Dosage: 25 MILLIGRAM/SQ. METER, Q2WEEKS
     Route: 042
     Dates: start: 20190606, end: 20191023
  4. VINBLASTINE [Suspect]
     Active Substance: VINBLASTINE
     Dosage: 6 MILLIGRAM/SQ. METER, Q2WEEKS
     Route: 042
     Dates: start: 20191213, end: 20191227
  5. DOXORUBICIN [Suspect]
     Active Substance: DOXORUBICIN
     Dosage: 25 MILLIGRAM/SQ. METER, Q2WEEKS
     Route: 042
     Dates: start: 20191119, end: 20191119
  6. VINBLASTINE [Suspect]
     Active Substance: VINBLASTINE
     Indication: HODGKIN^S DISEASE
     Dosage: 6 MILLIGRAM/SQ. METER, Q2WEEKS
     Route: 042
     Dates: start: 20190606, end: 20191023
  7. VINBLASTINE [Suspect]
     Active Substance: VINBLASTINE
     Dosage: 6 MILLIGRAM/SQ. METER, Q2WEEKS
     Route: 042
     Dates: start: 20191119, end: 20191119
  8. BRENTUXIMAB VEDOTIN [Suspect]
     Active Substance: BRENTUXIMAB VEDOTIN
     Indication: HODGKIN^S DISEASE
     Dosage: 48 MILLIGRAM/SQ. METER, Q2WEEKS
     Route: 042
     Dates: start: 20190606, end: 20191023
  9. BRENTUXIMAB VEDOTIN [Suspect]
     Active Substance: BRENTUXIMAB VEDOTIN
     Dosage: 48 MILLIGRAM/SQ. METER, Q2WEEKS
     Route: 042
     Dates: start: 20191119, end: 20191119
  10. DACARBAZINE. [Suspect]
     Active Substance: DACARBAZINE
     Dosage: 375 MILLIGRAM/SQ. METER, Q2WEEKS
     Route: 042
     Dates: start: 20191213, end: 20191227
  11. DACARBAZINE. [Suspect]
     Active Substance: DACARBAZINE
     Indication: HODGKIN^S DISEASE
     Dosage: 375 MILLIGRAM/SQ. METER, Q2WEEKS
     Route: 042
     Dates: start: 20190606, end: 20191023
  12. DACARBAZINE. [Suspect]
     Active Substance: DACARBAZINE
     Dosage: 375 MILLIGRAM/SQ. METER, Q2WEEKS
     Route: 042
     Dates: start: 20191119, end: 20191119

REACTIONS (2)
  - Neutrophil count decreased [Recovered/Resolved]
  - White blood cell count decreased [Recovered/Resolved]

NARRATIVE: CASE EVENT DATE: 20191223
